FAERS Safety Report 23556745 (Version 2)
Quarter: 2024Q2

REPORT INFORMATION
  Report Type: Report from Study
  Country: CA (occurrence: CA)
  Receive Date: 20240223
  Receipt Date: 20240424
  Transmission Date: 20240717
  Serious: Yes (Other)
  Sender: FDA-Public Use
  Company Number: CA-SAMSUNG BIOEPIS-SB-2024-03888

PATIENT
  Age: 48 Year
  Sex: Female

DRUGS (3)
  1. ETANERCEPT [Suspect]
     Active Substance: ETANERCEPT
     Indication: Ankylosing spondylitis
     Dosage: 50 MG/ ML;
     Route: 065
     Dates: start: 20220516
  2. NIFEDIPINE [Suspect]
     Active Substance: NIFEDIPINE
     Indication: Product used for unknown indication
     Route: 065
  3. CLOBETASOL [Suspect]
     Active Substance: CLOBETASOL
     Indication: Lichen sclerosus
     Route: 065

REACTIONS (19)
  - Anal stenosis [Not Recovered/Not Resolved]
  - Urinary retention [Unknown]
  - Pelvic floor dysfunction [Unknown]
  - Abdominal distension [Unknown]
  - Dermatitis [Unknown]
  - Decreased appetite [Unknown]
  - Carpal tunnel syndrome [Unknown]
  - Dry eye [Unknown]
  - Haemorrhage [Unknown]
  - Feeding disorder [Not Recovered/Not Resolved]
  - Gastric hypertonia [Unknown]
  - Ill-defined disorder [Unknown]
  - Gait inability [Unknown]
  - Bedridden [Unknown]
  - Nerve compression [Unknown]
  - Asthenia [Unknown]
  - Dizziness [Unknown]
  - Poisoning [Unknown]
  - Ill-defined disorder [Unknown]

NARRATIVE: CASE EVENT DATE: 20230901
